FAERS Safety Report 23332007 (Version 1)
Quarter: 2023Q4

REPORT INFORMATION
  Report Type: Report from Study
  Country: CN (occurrence: CN)
  Receive Date: 20231222
  Receipt Date: 20231222
  Transmission Date: 20240109
  Serious: No
  Sender: FDA-Public Use
  Company Number: CN-PFIZER INC-PV202300204046

PATIENT
  Age: 60 Year
  Sex: Female

DRUGS (1)
  1. NIRMATRELVIR\RITONAVIR [Suspect]
     Active Substance: NIRMATRELVIR\RITONAVIR
     Indication: COVID-19
     Dosage: 2X/DAY (BID)
     Route: 048
     Dates: start: 20220428, end: 20220506

REACTIONS (1)
  - Inappropriate schedule of product administration [Unknown]
